FAERS Safety Report 8893456 (Version 1)
Quarter: 2012Q4

REPORT INFORMATION
  Report Type: 
  Country: US (occurrence: US)
  Receive Date: 20121107
  Receipt Date: 20121107
  Transmission Date: 20130627
  Serious: No
  Sender: FDA-Public Use
  Company Number: US-AMGEN-USASP2011052867

PATIENT
  Age: 49 Year
  Sex: Female
  Weight: 69.39 kg

DRUGS (5)
  1. ENBREL [Suspect]
     Indication: PSORIASIS
     Dosage: 50 mg, qwk
     Route: 058
  2. KLONOPIN [Concomitant]
     Dosage: 1 mg, UNK
  3. METHOTREXATE [Concomitant]
     Dosage: 2.5 mg, UNK
  4. LEXAPRO [Concomitant]
     Dosage: 5 mg, UNK
  5. DIPHENDRYL [Concomitant]
     Dosage: 25 mg, UNK

REACTIONS (4)
  - Injection site reaction [Recovering/Resolving]
  - Injection site rash [Recovering/Resolving]
  - Injection site erythema [Recovering/Resolving]
  - Psoriasis [Unknown]
